FAERS Safety Report 17027229 (Version 1)
Quarter: 2019Q4

REPORT INFORMATION
  Report Type: Spontaneous
  Country: US (occurrence: US)
  Receive Date: 20191113
  Receipt Date: 20191113
  Transmission Date: 20200122
  Serious: Yes (Life-Threatening, Other)
  Sender: FDA-Public Use
  Company Number: 2019US001068

PATIENT
  Age: 59 Year
  Sex: Female

DRUGS (1)
  1. FLUORESCEIN SODIUM. [Suspect]
     Active Substance: FLUORESCEIN SODIUM
     Indication: CYSTOSCOPY
     Dosage: 0.25 ML, OT
     Route: 042

REACTIONS (9)
  - Off label use [Unknown]
  - Mean arterial pressure decreased [Unknown]
  - Rash erythematous [Unknown]
  - Bradycardia [Unknown]
  - Oxygen saturation decreased [Unknown]
  - Electrocardiogram ST segment elevation [Unknown]
  - Hypoxia [Unknown]
  - Hypotension [Unknown]
  - Anaphylactic shock [Unknown]
